FAERS Safety Report 8070020-7 (Version None)
Quarter: 2012Q1

REPORT INFORMATION
  Report Type: 
  Country: None (occurrence: None)
  Receive Date: 20120125
  Receipt Date: 20120113
  Transmission Date: 20120608
  Serious: Yes (Death)
  Sender: FDA-Public Use
  Company Number: US-PFIZER INC-2011240541

PATIENT
  Sex: Female
  Weight: 55.782 kg

DRUGS (29)
  1. TOVIAZ [Suspect]
     Indication: HYPERTONIC BLADDER
     Dosage: 8 MG, 1X/DAY
     Route: 048
     Dates: start: 20110914, end: 20110901
  2. RISPERDAL [Concomitant]
     Indication: PSYCHOTIC DISORDER
     Dosage: 3 MG, AT NIGHT (QHS)
     Route: 048
  3. ACETYLSALICYLIC ACID [Concomitant]
     Indication: PROPHYLAXIS
     Dosage: 81 MG, 1X/DAY
     Route: 048
  4. GABAPENTIN [Concomitant]
     Indication: PAIN
     Dosage: 300 MG, 3X/DAY
     Route: 048
  5. CYCLOBENZAPRINE HYDROCHLORIDE [Concomitant]
     Dosage: 10 MG, 3X/DAY
     Route: 048
  6. LASIX [Concomitant]
     Dosage: 40 MG, 2X/DAY
     Route: 048
  7. ACETAMINOPHEN AND HYDROCODONE BITARTRATE [Concomitant]
     Indication: PAIN
     Dosage: 7.5 MG, 4 TIMES PER DAY AS NEEDED
     Route: 048
     Dates: start: 20110201
  8. HYDROMORPHONE HYDROCHLORIDE [Concomitant]
     Indication: PAIN
     Dosage: 2 MG, 4 TIMES A DAY AS NEEDED
     Route: 048
  9. AMITRIPTYLINE [Concomitant]
     Indication: DEPRESSION
     Dosage: 75 MG, AT NIGHT (QHS)
     Route: 048
  10. CYMBALTA [Concomitant]
     Indication: DEPRESSION
     Dosage: 60 MG, 2X/DAY
     Route: 048
  11. TOPIRAMATE [Concomitant]
     Dosage: 100 MG, 2 TAB IN AM
     Route: 048
  12. POTASSIUM CHLORIDE [Concomitant]
     Dosage: 10 MEQ, WITH LASIX
     Route: 048
  13. PAROXETINE [Concomitant]
     Dosage: 60 MG, AM
     Route: 048
  14. BENADRYL [Concomitant]
     Indication: HYPERSENSITIVITY
     Dosage: UNK
     Route: 048
  15. VALIUM [Concomitant]
     Dosage: 5 MG, 2X/DAY
     Route: 048
  16. XANAX [Concomitant]
  17. TRAMADOL [Concomitant]
     Indication: PAIN
     Dosage: 50 MG, EVERY 4 HRS
     Route: 048
  18. WARFARIN SODIUM [Concomitant]
     Indication: CORONARY ARTERY DISEASE
     Dosage: 2.5 MG, AT NIGHT (QHS)
     Route: 048
  19. COMBIVENT [Concomitant]
     Dosage: UNK
     Route: 055
  20. NEXIUM [Concomitant]
     Dosage: 40 MG, 1X/DAY
     Route: 048
  21. REMERON [Concomitant]
     Indication: DEPRESSION
     Dosage: 45 MG, AT NIGHT (QHS)
     Route: 048
  22. LUNESTA [Concomitant]
     Indication: INSOMNIA
     Dosage: 3 MG, AT NIGHT (QHS)
     Route: 048
  23. ALLEGRA [Concomitant]
     Indication: HYPERSENSITIVITY
     Dosage: UNK
     Route: 048
  24. SPIRIVA [Concomitant]
     Route: 055
  25. HYDROCODONE [Concomitant]
     Indication: BACK PAIN
     Dosage: UNK
  26. ATIVAN [Concomitant]
     Indication: ANXIETY
     Dosage: 0.5 MG, 2X/DAY
     Route: 048
  27. PLAVIX [Concomitant]
     Indication: CORONARY ARTERY DISEASE
     Dosage: 75 MG, 1X/DAY
     Route: 048
  28. CHANTIX [Concomitant]
     Indication: SMOKING CESSATION THERAPY
     Dosage: 0.5 MG, 2X/DAY
     Route: 048
  29. LOPERAMIDE HYDROCHLORIDE [Concomitant]
     Route: 048

REACTIONS (2)
  - HYPERTENSIVE HEART DISEASE [None]
  - PULMONARY EMBOLISM [None]
